FAERS Safety Report 4678163-2 (Version None)
Quarter: 2005Q2

REPORT INFORMATION
  Report Type: 
  Country: None (occurrence: None)
  Receive Date: 20050527
  Receipt Date: 20050517
  Transmission Date: 20051028
  Serious: Yes (Life-Threatening)
  Sender: FDA-Public Use
  Company Number: 2005076510

PATIENT
  Age: 51 Year
  Sex: Female
  Weight: 50 kg

DRUGS (7)
  1. DOXORUBICIN HYDROCHLORIDE [Suspect]
     Indication: OVARIAN CANCER METASTATIC
     Dosage: INTRAVENOUS
     Route: 042
     Dates: start: 20050421, end: 20050421
  2. GRANISETRON (GRANISETRON) [Concomitant]
  3. DEXAMETHASONE [Concomitant]
  4. CARBOPLATIN [Concomitant]
  5. PACLITAXEL [Concomitant]
  6. IBUPROFEN [Concomitant]
  7. MORPHINE [Concomitant]

REACTIONS (1)
  - ANAPHYLACTIC REACTION [None]
